FAERS Safety Report 25943118 (Version 1)
Quarter: 2025Q4

REPORT INFORMATION
  Report Type: Spontaneous
  Country: US (occurrence: None)
  Receive Date: 20251020
  Receipt Date: 20251020
  Transmission Date: 20260118
  Serious: Yes (Hospitalization, Other)
  Sender: FDA-CTU
  Company Number: None

PATIENT
  Age: 29 Year
  Sex: Female
  Weight: 69.3 kg

DRUGS (2)
  1. VIVITROL [Suspect]
     Active Substance: NALTREXONE
     Indication: Alcohol use
     Dosage: OTHER FREQUENCY : MONTHLY;?
     Route: 030
     Dates: start: 20251013, end: 20251017
  2. VIVITROL [Concomitant]
     Active Substance: NALTREXONE
     Dates: start: 20251013, end: 20251017

REACTIONS (1)
  - Injection site induration [None]

NARRATIVE: CASE EVENT DATE: 20251017
